FAERS Safety Report 8995316 (Version 1)
Quarter: 2013Q1

REPORT INFORMATION
  Report Type: Spontaneous
  Country: US (occurrence: US)
  Receive Date: 20130103
  Receipt Date: 20130103
  Transmission Date: 20140127
  Serious: Yes (Hospitalization)
  Sender: FDA-Public Use
  Company Number: US-ELI_LILLY_AND_COMPANY-US201212006389

PATIENT
  Age: 58 None
  Sex: Male
  Weight: 91.61 kg

DRUGS (5)
  1. EFFIENT [Suspect]
     Indication: STENT PLACEMENT
     Dosage: 10 MG, UNK
     Dates: start: 201111
  2. CRESTOR [Concomitant]
  3. INSULIN [Concomitant]
  4. ZETIA [Concomitant]
  5. ANTIDEPRESSANTS [Concomitant]

REACTIONS (3)
  - Myocardial infarction [Unknown]
  - Drug dose omission [Recovered/Resolved]
  - Knee operation [Unknown]
